FAERS Safety Report 7222383-X (Version None)
Quarter: 2011Q1

REPORT INFORMATION
  Report Type: 
  Country: None (occurrence: None)
  Receive Date: 20110112
  Receipt Date: 20110104
  Transmission Date: 20110831
  Serious: Yes (Death, Other)
  Sender: FDA-Public Use
  Company Number: CH-BAYER-2011-001637

PATIENT
  Age: 60 Year
  Sex: Female

DRUGS (7)
  1. FLUMAZENIL [Concomitant]
     Indication: REVERSAL OF SEDATION
  2. OXYGEN [Concomitant]
     Indication: HYPOXIA
  3. MIDAZOLAM HCL [Concomitant]
     Indication: SEDATION
     Dosage: 5 MG, UNK
  4. NALOXONE [Concomitant]
     Indication: REVERSAL OF SEDATION
  5. HYDROCODONE BITARTRATE [Concomitant]
     Indication: SEDATION
     Dosage: 5 MG, UNK
  6. LEPIRUDIN [Suspect]
     Indication: HEPARIN-INDUCED THROMBOCYTOPENIA
  7. HEPARIN [Concomitant]
     Indication: ANTICOAGULANT THERAPY

REACTIONS (2)
  - AIR EMBOLISM [None]
  - PERIPHERAL ISCHAEMIA [None]
